FAERS Safety Report 6042451-8 (Version None)
Quarter: 2009Q1

REPORT INFORMATION
  Report Type: 
  Country: None (occurrence: None)
  Receive Date: 20090116
  Receipt Date: 20090115
  Transmission Date: 20090719
  Serious: Yes (Other)
  Sender: FDA-Public Use
  Company Number: US-B.I. PHARMACEUTICALS,INC./RIDGEFIELD-2008-BP-18186BP

PATIENT
  Age: 69 Year
  Sex: Male

DRUGS (4)
  1. SPIRIVA [Suspect]
     Indication: CHRONIC OBSTRUCTIVE PULMONARY DISEASE
     Dosage: 18MCG
     Route: 055
     Dates: start: 20071210
  2. ADVAIR DISKUS 100/50 [Suspect]
     Indication: ASTHMA
     Dosage: 2PUF
     Route: 055
     Dates: start: 20060101
  3. ZOCOR [Concomitant]
     Dosage: 10MG
  4. AMLODIPINE BESYLATE [Concomitant]
     Dosage: 5MG

REACTIONS (1)
  - LUNG NEOPLASM [None]
